FAERS Safety Report 8362112-X (Version None)
Quarter: 2012Q2

REPORT INFORMATION
  Report Type: 
  Country: None (occurrence: None)
  Receive Date: 20120515
  Receipt Date: 20120510
  Transmission Date: 20120825
  Serious: Yes (Hospitalization, Other)
  Sender: FDA-Public Use
  Company Number: KR-ALLERGAN-1206669US

PATIENT

DRUGS (1)
  1. BOTULINUM TOXIN TYPE A [Suspect]
     Indication: MASTICATION DISORDER
     Dosage: UNK
     Route: 030
     Dates: start: 20120509, end: 20120509

REACTIONS (4)
  - TOXIC SHOCK SYNDROME [None]
  - RESPIRATORY DISORDER [None]
  - RESPIRATORY TRACT OEDEMA [None]
  - EPISTAXIS [None]
